FAERS Safety Report 5797963-9 (Version None)
Quarter: 2008Q3

REPORT INFORMATION
  Report Type: 
  Country: None (occurrence: None)
  Receive Date: 20080701
  Receipt Date: 20080701
  Transmission Date: 20090109
  Serious: Yes (Hospitalization)
  Sender: FDA-Public Use
  Company Number: None

PATIENT
  Sex: Male
  Weight: 73.4827 kg

DRUGS (1)
  1. NEXIUM [Suspect]
     Indication: GASTROOESOPHAGEAL REFLUX DISEASE
     Dosage: 40MG DOSE #1 6/26 PM DOSE # 2 6/27 AM

REACTIONS (3)
  - DYSPHAGIA [None]
  - PHARYNGEAL OEDEMA [None]
  - SPEECH DISORDER [None]
